FAERS Safety Report 6229799-9 (Version None)
Quarter: 2009Q2

REPORT INFORMATION
  Report Type: 
  Country: None (occurrence: None)
  Receive Date: 20090615
  Receipt Date: 20090603
  Transmission Date: 20091009
  Serious: Yes (Hospitalization, Other)
  Sender: FDA-Public Use
  Company Number: US-PFIZER INC-2009212181

PATIENT
  Sex: Male
  Weight: 138.79 kg

DRUGS (3)
  1. CHANTIX [Suspect]
     Indication: SMOKING CESSATION THERAPY
     Dosage: UNK
     Route: 048
     Dates: start: 20090331
  2. CHANTIX [Suspect]
     Indication: TOBACCO ABUSE
     Dosage: UNK
     Dates: start: 20080801
  3. BENICAR [Concomitant]
     Dosage: 20 MG, 1X/DAY

REACTIONS (4)
  - DIZZINESS [None]
  - FALL [None]
  - HEAD INJURY [None]
  - SYNCOPE [None]
